FAERS Safety Report 10547601 (Version 1)
Quarter: 2014Q4

REPORT INFORMATION
  Report Type: Spontaneous
  Country: US (occurrence: None)
  Receive Date: 20141015
  Receipt Date: 20141015
  Transmission Date: 20150529
  Serious: No
  Sender: FDA-Public Use
  Company Number: 2014US003515

PATIENT
  Age: 64 Year
  Sex: Male

DRUGS (19)
  1. ADVAIR (FLUTICASONE PROPIONATE, SALMETEROL XINAFOATE) INHALER [Concomitant]
  2. ICLUSIG [Suspect]
     Active Substance: PONATINIB
     Indication: CHRONIC MYELOID LEUKAEMIA
     Route: 048
     Dates: start: 20140721, end: 20140728
  3. CODEINE (CODEINE PHOSPHATE) [Concomitant]
  4. FERROUS SULFATE [Concomitant]
     Active Substance: FERROUS SULFATE\FERROUS SULFATE, DRIED
  5. CLARITIN [Concomitant]
     Active Substance: LORATADINE
  6. ALLOPURINOL (ALLOPURINOL) [Concomitant]
     Active Substance: ALLOPURINOL
  7. GLIPIZIDE (GLIPIZIDE) [Concomitant]
     Active Substance: GLIPIZIDE
  8. METOCLOPRAMIDE (METOCLOPRAMIDE HYDROCHLORIDE) [Concomitant]
  9. PROTONIX [Concomitant]
     Active Substance: PANTOPRAZOLE SODIUM
  10. SPIRIVA (TIOTROPIUM BROMIDE) [Concomitant]
  11. CYCLOBENZAPRINE (CYCLOBENZAPRINE) [Concomitant]
     Active Substance: CYCLOBENZAPRINE
  12. KLOR-CON (POTASSIUM CHLORIDE) [Concomitant]
  13. SPIRONOLACTONE (SPIRONOLACTONE) [Concomitant]
     Active Substance: SPIRONOLACTONE
  14. VENTOLIN HFA [Concomitant]
     Active Substance: ALBUTEROL SULFATE
  15. NADOLOL (NADOLOL) [Concomitant]
     Active Substance: NADOLOL
  16. LOVASTATIN (LOVASTATIN) [Concomitant]
     Active Substance: LOVASTATIN
  17. METFORMIN [Concomitant]
     Active Substance: METFORMIN HYDROCHLORIDE
  18. ULTRAM ER (TRAMADOL HYDROCHLORIDE) [Concomitant]
  19. VALIUM [Concomitant]
     Active Substance: DIAZEPAM

REACTIONS (7)
  - Rash [None]
  - Headache [None]
  - Abdominal pain [None]
  - Fatigue [None]
  - Bed rest [None]
  - Myalgia [None]
  - Arthralgia [None]

NARRATIVE: CASE EVENT DATE: 20140722
